FAERS Safety Report 25811251 (Version 1)
Quarter: 2025Q3

REPORT INFORMATION
  Report Type: Spontaneous
  Country: EU (occurrence: EU)
  Receive Date: 20250917
  Receipt Date: 20250917
  Transmission Date: 20251021
  Serious: Yes (Other)
  Sender: HIKMA
  Company Number: None

PATIENT
  Age: 35 Year
  Sex: Male
  Weight: 88 kg

DRUGS (3)
  1. BLEOMYCIN [Suspect]
     Active Substance: BLEOMYCIN SULFATE
     Indication: Testicular neoplasm
     Route: 042
     Dates: start: 20250217, end: 20250415
  2. CISPLATIN [Suspect]
     Active Substance: CISPLATIN
     Indication: Testicular neoplasm
     Dosage: UNK UNK, 3W
     Route: 042
     Dates: start: 20250217, end: 20250415
  3. ETOPOSIDE [Suspect]
     Active Substance: ETOPOSIDE
     Indication: Testicular neoplasm
     Dosage: UNK UNK, 3W
     Route: 042
     Dates: start: 20250217, end: 20250415

REACTIONS (3)
  - Abdominal pain [Recovered/Resolved]
  - Asthenia [Recovered/Resolved]
  - Thrombocytopenia [Recovered/Resolved]

NARRATIVE: CASE EVENT DATE: 20250225
